FAERS Safety Report 6990528 (Version 2)
Quarter: 2014Q3

REPORT INFORMATION
  Report Type: Spontaneous
  Country: US (occurrence: None)
  Receive Date: 20090430
  Receipt Date: 20140829
  Transmission Date: 20150326
  Serious: Yes (Hospitalization, Other)
  Sender: FDA-Public Use
  Company Number: 2007S1008615

PATIENT
  Age: 61 Year
  Sex: Female
  Weight: 83 kg

DRUGS (8)
  1. LISINOPRIL /HYDROCHLOROTHIAZIDE [Concomitant]
  2. METROCREAM (METRONIDAZOLE) [Concomitant]
  3. PHOSPHO-SODA [Suspect]
     Active Substance: SODIUM PHOSPHATE, DIBASIC\SODIUM PHOSPHATE, MONOBASIC
     Indication: COLONOSCOPY
     Dosage: TOTAL, ORAL
     Route: 048
     Dates: start: 20060608, end: 20060609
  4. VITAMIN B6 [Concomitant]
     Active Substance: PYRIDOXINE HYDROCHLORIDE
  5. AMITRIPTYLINE (AMITRIPTYLINE HYDROCHLORIDE) [Concomitant]
  6. FLUOCINONIDE. [Concomitant]
     Active Substance: FLUOCINONIDE
  7. CALCIUM AND VITAMIN D (ERGOCALCIFEROL, CALCIUM) [Concomitant]
  8. VITAMIN B12 [Concomitant]
     Active Substance: CYANOCOBALAMIN

REACTIONS (4)
  - Nephrocalcinosis [None]
  - Anaemia [None]
  - Renal failure chronic [None]
  - Kidney fibrosis [None]

NARRATIVE: CASE EVENT DATE: 20060613
